FAERS Safety Report 6539455-5 (Version None)
Quarter: 2010Q1

REPORT INFORMATION
  Report Type: 
  Country: None (occurrence: None)
  Receive Date: 20100115
  Receipt Date: 20100111
  Transmission Date: 20100710
  Serious: Yes (Other)
  Sender: FDA-Public Use
  Company Number: GB-ROCHE-678839

PATIENT

DRUGS (4)
  1. BEVACIZUMAB [Suspect]
     Dosage: ON DAY 1 AND 15 (OVER 90 MINUTES, REDUCING TO 60 THEN 30 MINUTES SUBSEQUENTLY) FORM: INFUSION
     Route: 042
  2. ERLOTINIB [Suspect]
     Dosage: ON DAY 1 THROUGH 28
     Route: 048
  3. CAPECITABINE [Suspect]
     Dosage: DAY1-21 DOSE LEVELS (DL) 1= 910 MG/ME2, DL2= 1,160 MG/ME2, DL3= 1400 MG/ME2 AND DL41,660 MG/ME2
     Route: 048
  4. GEMCITABINE [Suspect]
     Dosage: OVER 30 MINUTES, ON DAYS 1, 8 AND 15 OF A 28-DAY CYCLE
     Route: 042

REACTIONS (16)
  - ANAEMIA [None]
  - DERMATITIS ACNEIFORM [None]
  - DIARRHOEA [None]
  - EMBOLISM [None]
  - EPISTAXIS [None]
  - FEBRILE NEUTROPENIA [None]
  - HAEMORRHAGE [None]
  - HYPERTENSION [None]
  - INTERSTITIAL LUNG DISEASE [None]
  - LETHARGY [None]
  - NEUTROPENIA [None]
  - PALMAR-PLANTAR ERYTHRODYSAESTHESIA SYNDROME [None]
  - PROTEINURIA [None]
  - STOMATITIS [None]
  - THROMBOCYTOPENIA [None]
  - VOMITING [None]
